FAERS Safety Report 8893755 (Version 4)
Quarter: 2014Q1

REPORT INFORMATION
  Report Type: Spontaneous
  Country: US (occurrence: US)
  Receive Date: 20121107
  Receipt Date: 20140128
  Transmission Date: 20141002
  Serious: Yes (Disabling, Other)
  Sender: FDA-Public Use
  Company Number: US-AMGEN-USASP2011061832

PATIENT
  Age: 47 Year
  Sex: Male

DRUGS (2)
  1. ENBREL [Suspect]
     Indication: PSORIATIC ARTHROPATHY
     Dosage: 50 MG EVERY FIVE DAYS
     Route: 065
     Dates: start: 20051007
  2. ENBREL [Suspect]
     Indication: PSORIASIS

REACTIONS (18)
  - Acute disseminated encephalomyelitis [Unknown]
  - Blindness [Not Recovered/Not Resolved]
  - Mania [Unknown]
  - Amnesia [Not Recovered/Not Resolved]
  - Dysgeusia [Unknown]
  - Hearing impaired [Unknown]
  - Disorientation [Not Recovered/Not Resolved]
  - Visual impairment [Not Recovered/Not Resolved]
  - Impaired driving ability [Unknown]
  - Memory impairment [Unknown]
  - Personality change [Unknown]
  - Paraesthesia [Unknown]
  - Demyelination [Unknown]
  - Psoriatic arthropathy [Not Recovered/Not Resolved]
  - Arthralgia [Not Recovered/Not Resolved]
  - Back pain [Recovered/Resolved]
  - Neck pain [Recovered/Resolved]
  - Psoriasis [Not Recovered/Not Resolved]
